FAERS Safety Report 5562131-2 (Version None)
Quarter: 2007Q4

REPORT INFORMATION
  Report Type: 
  Country: None (occurrence: None)
  Receive Date: 20071215
  Receipt Date: 20061130
  Transmission Date: 20080405
  Serious: No
  Sender: FDA-Public Use
  Company Number: US-AMGEN-US196691

PATIENT
  Sex: Female

DRUGS (7)
  1. ENBREL [Suspect]
     Indication: RHEUMATOID ARTHRITIS
     Route: 058
     Dates: start: 20061011
  2. ENBREL [Suspect]
     Route: 065
     Dates: start: 20061101
  3. METHOTREXATE [Concomitant]
     Route: 048
     Dates: start: 20010101
  4. FOLIC ACID [Concomitant]
     Route: 065
  5. PREDNISONE [Concomitant]
     Route: 065
  6. SYNTHROID [Concomitant]
     Route: 065
  7. NEXIUM [Concomitant]
     Route: 065

REACTIONS (2)
  - INJECTION SITE IRRITATION [None]
  - ROSACEA [None]
